FAERS Safety Report 24620543 (Version 1)
Quarter: 2024Q4

REPORT INFORMATION
  Report Type: Spontaneous
  Country: FR (occurrence: FR)
  Receive Date: 20241114
  Receipt Date: 20241114
  Transmission Date: 20250115
  Serious: Yes (Other)
  Sender: MERCK
  Company Number: None

PATIENT
  Age: 68 Year
  Sex: Male
  Weight: 69 kg

DRUGS (3)
  1. KEYTRUDA [Suspect]
     Active Substance: PEMBROLIZUMAB
     Indication: Oropharyngeal squamous cell carcinoma
     Dosage: 200 MILLIGRAM, ONCE
     Route: 042
     Dates: start: 20240828, end: 20240828
  2. FLUOROURACIL [Suspect]
     Active Substance: FLUOROURACIL
     Indication: Oropharyngeal squamous cell carcinoma
     Dosage: 74000 MILLIGRAM, ONCE
     Route: 042
     Dates: start: 20240830, end: 20240904
  3. CISPLATIN [Suspect]
     Active Substance: CISPLATIN
     Indication: Oropharyngeal squamous cell carcinoma
     Dosage: 185 MILLIGRAM, ONCE
     Route: 042
     Dates: start: 20240830, end: 20240830

REACTIONS (2)
  - Rash pustular [Recovered/Resolved]
  - Oligoarthritis [Recovered/Resolved]

NARRATIVE: CASE EVENT DATE: 20240915
